FAERS Safety Report 4575618-6 (Version None)
Quarter: 2005Q1

REPORT INFORMATION
  Report Type: 
  Country: None (occurrence: None)
  Receive Date: 20050209
  Receipt Date: 20041215
  Transmission Date: 20050727
  Serious: Yes (Other)
  Sender: FDA-Public Use
  Company Number: AU-GLAXOSMITHKLINE-B0363505A

PATIENT
  Age: 70 Year
  Sex: Male

DRUGS (1)
  1. ZOVIRAX [Suspect]
     Indication: VIRAL INFECTION
     Dosage: 200MG PER DAY
     Route: 065
     Dates: end: 20041218

REACTIONS (10)
  - CONFUSIONAL STATE [None]
  - DIARRHOEA [None]
  - FATIGUE [None]
  - HALLUCINATION [None]
  - MUSCLE SPASMS [None]
  - NAUSEA [None]
  - PHARYNGOLARYNGEAL PAIN [None]
  - PYREXIA [None]
  - VERTIGO [None]
  - VOMITING [None]
